FAERS Safety Report 16126449 (Version 1)
Quarter: 2019Q1

REPORT INFORMATION
  Report Type: Other
  Country: US (occurrence: US)
  Receive Date: 20190328
  Receipt Date: 20190328
  Transmission Date: 20190418
  Serious: Yes (Life-Threatening, Hospitalization)
  Sender: FDA-Public Use
  Company Number: US-FDC LIMITED-2064814

PATIENT
  Age: 25 Year
  Sex: Female
  Weight: 65 kg

DRUGS (2)
  1. CIPROFLOXACIN. [Suspect]
     Active Substance: CIPROFLOXACIN
     Indication: PYELONEPHRITIS
     Route: 048
  2. IBUPROFEN. [Concomitant]
     Active Substance: IBUPROFEN
     Route: 048

REACTIONS (5)
  - Nausea [Recovering/Resolving]
  - Angioedema [Recovering/Resolving]
  - Anaphylactoid reaction [Recovered/Resolved]
  - Pulmonary oedema [Recovering/Resolving]
  - Vomiting [Recovering/Resolving]
